FAERS Safety Report 24103682 (Version 1)
Quarter: 2024Q3

REPORT INFORMATION
  Report Type: Report from Study
  Country: US (occurrence: None)
  Receive Date: 20240717
  Receipt Date: 20240717
  Transmission Date: 20241016
  Serious: Yes (Hospitalization)
  Sender: ASTRAZENECA
  Company Number: 2019SF57025

PATIENT
  Age: 29834 Day
  Sex: Male

DRUGS (7)
  1. LYNPARZA [Suspect]
     Active Substance: OLAPARIB
     Route: 048
     Dates: start: 20191021
  2. LYNPARZA [Suspect]
     Active Substance: OLAPARIB
     Route: 048
     Dates: start: 20191023
  3. ATORVASTATIN CALCIUM [Concomitant]
     Active Substance: ATORVASTATIN CALCIUM
  4. OLMESARTAN MEDOXOMIL [Concomitant]
     Active Substance: OLMESARTAN MEDOXOMIL
  5. TYLENOL [Concomitant]
     Active Substance: ACETAMINOPHEN
  6. COLACE [Concomitant]
     Active Substance: DOCUSATE SODIUM
  7. GABAPENTIN [Concomitant]
     Active Substance: GABAPENTIN

REACTIONS (5)
  - Pain [Recovering/Resolving]
  - Peripheral swelling [Recovering/Resolving]
  - Dehydration [Recovering/Resolving]
  - Constipation [Recovering/Resolving]
  - Confusional state [Unknown]

NARRATIVE: CASE EVENT DATE: 20191021
